FAERS Safety Report 8110471-5 (Version None)
Quarter: 2012Q1

REPORT INFORMATION
  Report Type: 
  Country: None (occurrence: None)
  Receive Date: 20120202
  Receipt Date: 20120127
  Transmission Date: 20120608
  Serious: No
  Sender: FDA-Public Use
  Company Number: US-B.I. PHARMACEUTICALS,INC./RIDGEFIELD-2012-BP-01770BP

PATIENT
  Sex: Female

DRUGS (14)
  1. TRAMADOL HCL [Concomitant]
     Indication: PAIN
     Dosage: 200 MG
     Route: 048
  2. SPIRIVA [Suspect]
     Indication: CHRONIC OBSTRUCTIVE PULMONARY DISEASE
     Dosage: 18 MCG
     Route: 055
     Dates: start: 20090101
  3. OMEPRAZOLE [Concomitant]
     Indication: GASTROOESOPHAGEAL REFLUX DISEASE
     Dosage: 40 MG
     Route: 048
  4. MSM [Concomitant]
     Indication: SUPPLEMENTATION THERAPY
     Dosage: 2000 MG
     Route: 048
  5. METOPROLOL [Concomitant]
     Indication: HYPERTENSION
     Dosage: 50 MG
     Route: 048
  6. ALBUTEROL [Concomitant]
     Indication: CHRONIC OBSTRUCTIVE PULMONARY DISEASE
     Route: 055
  7. SIMVASTATIN [Concomitant]
     Indication: BLOOD CHOLESTEROL INCREASED
     Dosage: 40 MG
     Route: 048
  8. THYROID TAB [Concomitant]
     Indication: HYPOTHYROIDISM
     Dosage: 2 G
     Route: 048
  9. LORAZEPAM [Concomitant]
     Indication: ANXIETY
     Route: 048
  10. SYMBICORT [Concomitant]
     Indication: CHRONIC OBSTRUCTIVE PULMONARY DISEASE
     Route: 055
  11. ASPIRIN [Concomitant]
     Indication: SUPPLEMENTATION THERAPY
     Dosage: 81 MG
     Route: 048
  12. TRAZODONE HCL [Concomitant]
     Indication: DEPRESSION
     Dosage: 50 MG
     Route: 048
  13. CALCIUM+D [Concomitant]
     Indication: SUPPLEMENTATION THERAPY
     Dosage: 1000 MG
     Route: 048
  14. GAS-X [Concomitant]
     Indication: FLATULENCE

REACTIONS (1)
  - DRUG INEFFECTIVE [None]
